FAERS Safety Report 8986314 (Version 1)
Quarter: 2012Q4

REPORT INFORMATION
  Report Type: Spontaneous
  Country: US (occurrence: None)
  Receive Date: 20121219
  Receipt Date: 20121219
  Transmission Date: 20130627
  Serious: Yes (Death)
  Sender: FDA-Public Use
  Company Number: None

PATIENT
  Age: 62 Year
  Sex: Male
  Weight: 106.6 kg

DRUGS (2)
  1. GLYBURIDE [Suspect]
     Indication: DIABETES
  2. METFORMIN [Suspect]

REACTIONS (2)
  - Renal impairment [None]
  - Gastrointestinal disorder [None]
